FAERS Safety Report 6500233-4 (Version None)
Quarter: 2009Q4

REPORT INFORMATION
  Report Type: 
  Country: None (occurrence: None)
  Receive Date: 20091215
  Receipt Date: 20091215
  Transmission Date: 20100525
  Serious: No
  Sender: FDA-Public Use
  Company Number: None

PATIENT
  Age: 41 Year
  Sex: Female
  Weight: 111.1313 kg

DRUGS (1)
  1. FENTANYL-25 [Suspect]
     Indication: DIABETIC NEUROPATHY
     Dosage: 25 MCG/HR Q3D
     Dates: start: 20080901

REACTIONS (3)
  - APPLICATION SITE ERYTHEMA [None]
  - APPLICATION SITE IRRITATION [None]
  - APPLICATION SITE PRURITUS [None]
